FAERS Safety Report 25790109 (Version 1)
Quarter: 2025Q3

REPORT INFORMATION
  Report Type: Spontaneous
  Country: US (occurrence: US)
  Receive Date: 20250911
  Receipt Date: 20250911
  Transmission Date: 20251020
  Serious: No
  Sender: GLENMARK
  Company Number: US-GLENMARK PHARMACEUTICALS-2025GMK101218

PATIENT

DRUGS (2)
  1. GABAPENTIN [Suspect]
     Active Substance: GABAPENTIN
     Indication: Neuropathy peripheral
     Dosage: 1 DOSAGE FORM, TID, BY MOUTH, 1 TABLET THREE TIMES A DAY
     Route: 048
     Dates: start: 1990
  2. GABAPENTIN [Suspect]
     Active Substance: GABAPENTIN
     Indication: Headache

REACTIONS (4)
  - Rash [Not Recovered/Not Resolved]
  - Recalled product administered [Unknown]
  - Therapy interrupted [Unknown]
  - Product use in unapproved indication [Unknown]
